FAERS Safety Report 7582566-6 (Version None)
Quarter: 2011Q2

REPORT INFORMATION
  Report Type: 
  Country: None (occurrence: None)
  Receive Date: 20110630
  Receipt Date: 20110627
  Transmission Date: 20111010
  Serious: Yes (Other)
  Sender: FDA-Public Use
  Company Number: US-PFIZER INC-2011143031

PATIENT
  Sex: Male
  Weight: 74.83 kg

DRUGS (5)
  1. CHANTIX [Suspect]
     Dosage: 1 MG, 2X/DAY
     Route: 048
     Dates: start: 20110101, end: 20110623
  2. SIMVASTATIN [Concomitant]
     Indication: BLOOD CHOLESTEROL ABNORMAL
     Dosage: 20 MG, DAILY
     Route: 048
  3. ASPIRIN [Concomitant]
     Indication: CARDIAC DISORDER
     Dosage: 81 MG, DAILY
     Route: 048
  4. ZYRTEC [Concomitant]
     Indication: PRURITUS
     Dosage: 10 MG, DAILY
     Route: 048
  5. CHANTIX [Suspect]
     Indication: SMOKING CESSATION THERAPY
     Dosage: 0.5 MG, DAILY
     Route: 048
     Dates: start: 20110519, end: 20110101

REACTIONS (3)
  - FEELING ABNORMAL [None]
  - DEPRESSION [None]
  - PARANOIA [None]
